FAERS Safety Report 7776666-5 (Version None)
Quarter: 2011Q3

REPORT INFORMATION
  Report Type: 
  Country: None (occurrence: None)
  Receive Date: 20110922
  Receipt Date: 20110922
  Transmission Date: 20111222
  Serious: Yes (Life-Threatening)
  Sender: FDA-Public Use
  Company Number: None

PATIENT
  Age: 40 Year
  Sex: Male
  Weight: 76.2 kg

DRUGS (1)
  1. DIVALPROEX SODIUM [Suspect]
     Dosage: 2500 MG EVERY DAY PO
     Route: 048

REACTIONS (1)
  - PANCREATITIS [None]
